FAERS Safety Report 4745111-6 (Version None)
Quarter: 2005Q3

REPORT INFORMATION
  Report Type: 
  Country: None (occurrence: None)
  Receive Date: 20050815
  Receipt Date: 20050628
  Transmission Date: 20060218
  Serious: Yes (Hospitalization)
  Sender: FDA-Public Use
  Company Number: IT-ROCHE-409077

PATIENT
  Age: 50 Year
  Sex: Male

DRUGS (5)
  1. PEG-INTERFERON ALFA 2A (RO 25-8310) [Suspect]
     Dosage: LAST DOSE PRIOR TO SAE WAS REPORTED AS 18 JUNE 2005.
     Route: 058
     Dates: start: 20041225
  2. THYMOSIN ALPHA 1 [Suspect]
     Route: 058
     Dates: start: 20041225, end: 20050621
  3. RIBAVIRIN [Suspect]
     Route: 048
     Dates: start: 20041225, end: 20050622
  4. NOVONORM [Concomitant]
     Route: 048
     Dates: start: 19980101
  5. TENORMIN [Concomitant]
     Indication: HYPERTENSION
     Route: 048
     Dates: start: 19900101

REACTIONS (2)
  - CORONARY ARTERY OCCLUSION [None]
  - MYOCARDIAL ISCHAEMIA [None]
